FAERS Safety Report 6604458-9 (Version None)
Quarter: 2010Q1

REPORT INFORMATION
  Report Type: 
  Country: None (occurrence: None)
  Receive Date: 20100226
  Receipt Date: 20091103
  Transmission Date: 20100710
  Serious: No
  Sender: FDA-Public Use
  Company Number: A0812393A

PATIENT
  Age: 30 Year
  Sex: Female
  Weight: 62.7 kg

DRUGS (4)
  1. LAMICTAL CD [Suspect]
     Indication: BIPOLAR DISORDER
     Dosage: 200MG PER DAY
     Route: 048
     Dates: start: 20090727, end: 20090926
  2. SOMA [Concomitant]
  3. AMBIEN [Concomitant]
  4. XANAX [Concomitant]

REACTIONS (1)
  - ECCHYMOSIS [None]
